FAERS Safety Report 5878825-5 (Version None)
Quarter: 2008Q3

REPORT INFORMATION
  Report Type: 
  Country: None (occurrence: None)
  Receive Date: 20080910
  Receipt Date: 20080910
  Transmission Date: 20090109
  Serious: Yes (Other)
  Sender: FDA-Public Use
  Company Number: None

PATIENT
  Age: 10 Day
  Sex: Female
  Weight: 53.5244 kg

DRUGS (2)
  1. YAZ [Suspect]
     Indication: ORAL CONTRACEPTION
     Dosage: ONE A DAY EVERY DAY PO
     Route: 048
     Dates: start: 20080831, end: 20080909
  2. YAZ [Suspect]
     Indication: PREMENSTRUAL SYNDROME
     Dosage: ONE A DAY EVERY DAY PO
     Route: 048
     Dates: start: 20080831, end: 20080909

REACTIONS (11)
  - ABDOMINAL DISTENSION [None]
  - ABDOMINAL PAIN [None]
  - AFFECTIVE DISORDER [None]
  - APPETITE DISORDER [None]
  - BREAST ENLARGEMENT [None]
  - BREAST PAIN [None]
  - DEPRESSION [None]
  - ERYTHEMA [None]
  - HOT FLUSH [None]
  - NAUSEA [None]
  - SLEEP DISORDER [None]
